FAERS Safety Report 8260875 (Version 2)
Quarter: 2014Q3

REPORT INFORMATION
  Report Type: Spontaneous
  Country: US (occurrence: US)
  Receive Date: 20111123
  Receipt Date: 20140717
  Transmission Date: 20150326
  Serious: Yes (Hospitalization)
  Sender: FDA-Public Use
  Company Number: US-MYLANLABS-2011S1023703

PATIENT
  Age: 14 Month
  Sex: Male

DRUGS (1)
  1. DONEPEZIL [Suspect]
     Active Substance: DONEPEZIL
     Indication: ACCIDENTAL EXPOSURE TO PRODUCT
     Dosage: 10MG
     Route: 048

REACTIONS (9)
  - Bradycardia [Recovered/Resolved]
  - Vomiting [Recovered/Resolved]
  - Drooling [Recovered/Resolved]
  - Accidental exposure to product by child [Recovered/Resolved]
  - Nodal rhythm [Recovered/Resolved]
  - Mental status changes [Recovered/Resolved]
  - Diarrhoea [Recovered/Resolved]
  - Somnolence [Recovered/Resolved]
  - Agitation [Recovered/Resolved]
